FAERS Safety Report 18283920 (Version 1)
Quarter: 2020Q3

REPORT INFORMATION
  Report Type: Spontaneous
  Country: US (occurrence: UM)
  Receive Date: 20200918
  Receipt Date: 20200918
  Transmission Date: 20201103
  Serious: No
  Sender: FDA-Public Use
  Company Number: US-JNJFOC-20200830753

PATIENT
  Age: 15 Year
  Sex: Male

DRUGS (1)
  1. INVEGA [Suspect]
     Active Substance: PALIPERIDONE
     Indication: SCHIZOPHRENIA
     Route: 048
     Dates: start: 20191201

REACTIONS (2)
  - Hepatic enzyme increased [Unknown]
  - Drug level increased [Unknown]

NARRATIVE: CASE EVENT DATE: 20200817
